FAERS Safety Report 10404263 (Version 1)
Quarter: 2014Q1

REPORT INFORMATION
  Report Type: Spontaneous
  Country: US (occurrence: None)
  Receive Date: 20140131
  Receipt Date: 20140131
  Transmission Date: 20141002
  Serious: Yes (Other)
  Sender: FDA-Public Use
  Company Number: 050725

PATIENT
  Age: 28 Year
  Sex: Female

DRUGS (6)
  1. KEPPRA [Suspect]
     Indication: EPILEPSY
     Dosage: 3000 MG, TOTAL DAILY DOSE: 3000 MG
  2. FOLIC ACID [Concomitant]
  3. INSULIN [Concomitant]
  4. PRENATAL VITAMINS [Concomitant]
  5. ESTRADIOL [Concomitant]
  6. VITAMIN B12 NOS [Concomitant]

REACTIONS (4)
  - Convulsion [None]
  - Twin pregnancy [None]
  - Fatigue [None]
  - Drug ineffective [None]
